FAERS Safety Report 7220178-4 (Version None)
Quarter: 2011Q1

REPORT INFORMATION
  Report Type: 
  Country: None (occurrence: None)
  Receive Date: 20110111
  Receipt Date: 20110104
  Transmission Date: 20110831
  Serious: Yes (Death, Life-Threatening, Hospitalization)
  Sender: FDA-Public Use
  Company Number: CA-NOVOPROD-321090

PATIENT
  Age: 83 Year
  Sex: Female
  Weight: 70 kg

DRUGS (14)
  1. CLARITHROMYCIN [Interacting]
     Dosage: 250 MG, BID
     Route: 048
  2. PANTOLOC                           /01263202/ [Concomitant]
     Dosage: UNK
     Route: 048
  3. SENSIPAR [Concomitant]
     Dosage: UNK
     Route: 048
  4. GLUCONORM [Suspect]
     Indication: PRODUCT USED FOR UNKNOWN INDICATION
     Dosage: 0.5 MG, TID
     Route: 048
  5. ACTONEL [Concomitant]
     Dosage: UNK
     Route: 048
  6. AMOXIL [Concomitant]
     Dosage: UNK
     Route: 048
  7. CLARITHROMYCIN [Interacting]
     Dosage: 500 MG, BID
     Route: 048
  8. NORVASC [Concomitant]
     Dosage: UNK
     Route: 048
  9. ARANESP [Concomitant]
     Dosage: UNK
     Route: 057
  10. LASIX [Concomitant]
  11. ZOCOR [Concomitant]
     Dosage: UNK
     Route: 048
  12. ALTACE [Concomitant]
     Dosage: UNK
     Route: 048
  13. BIAXIN [Concomitant]
     Dosage: UNK
     Route: 048
  14. FERROUS SULFATE [Concomitant]

REACTIONS (6)
  - UNRESPONSIVE TO STIMULI [None]
  - HYPOGLYCAEMIA [None]
  - SOMNOLENCE [None]
  - ASTHENIA [None]
  - METABOLIC ACIDOSIS [None]
  - DRUG INTERACTION [None]
